FAERS Safety Report 5683884-9 (Version None)
Quarter: 2008Q1

REPORT INFORMATION
  Report Type: 
  Country: None (occurrence: None)
  Receive Date: 20080327
  Receipt Date: 20080327
  Transmission Date: 20080703
  Serious: Yes (Other)
  Sender: FDA-Public Use
  Company Number: None

PATIENT

DRUGS (1)
  1. GABAPENTIN [Suspect]
     Indication: NEURALGIA
     Dosage: ONE PO TID  TID ORAL
     Route: 048
     Dates: start: 20080301

REACTIONS (2)
  - NAUSEA [None]
  - PALPITATIONS [None]
